FAERS Safety Report 8922518 (Version 1)
Quarter: 2012Q4

REPORT INFORMATION
  Report Type: 
  Country: MX (occurrence: MX)
  Receive Date: 20121123
  Receipt Date: 20121123
  Transmission Date: 20130627
  Serious: Yes (Hospitalization)
  Sender: FDA-Public Use
  Company Number: PHHY2012MX106053

PATIENT
  Age: 69 Year
  Sex: Female

DRUGS (3)
  1. ACLASTA [Suspect]
     Dosage: 5MG/100ML
     Route: 042
     Dates: start: 200911
  2. PRAVASTATINE [Concomitant]
     Indication: BLOOD CHOLESTEROL INCREASED
     Dosage: 1 DF, daily
     Dates: start: 2008
  3. CALCIUM [Concomitant]
     Indication: OSTEOPOROSIS
     Dosage: 1 DF, daily
     Dates: start: 2006

REACTIONS (2)
  - Benign vaginal neoplasm [Recovered/Resolved]
  - Vaginal haemorrhage [Recovered/Resolved]
